FAERS Safety Report 15325347 (Version 2)
Quarter: 2018Q3

REPORT INFORMATION
  Report Type: Spontaneous
  Country: JP (occurrence: JP)
  Receive Date: 20180828
  Receipt Date: 20180918
  Transmission Date: 20181010
  Serious: Yes (Other)
  Sender: FDA-Public Use
  Company Number: JP-BAYER-2018-154291

PATIENT
  Age: 75 Year
  Sex: Male
  Weight: 70.9 kg

DRUGS (13)
  1. CARVEDILOL. [Concomitant]
     Active Substance: CARVEDILOL
  2. NEXAVAR [Suspect]
     Active Substance: SORAFENIB
     Indication: HEPATOCELLULAR CARCINOMA
     Dosage: UNK, QD
     Route: 048
     Dates: start: 20130603, end: 20180608
  3. BISOPROLOL [Concomitant]
     Active Substance: BISOPROLOL
  4. LENVATINIB [Suspect]
     Active Substance: LENVATINIB
     Indication: HEPATOCELLULAR CARCINOMA
     Dosage: 4 MG, QD
     Route: 048
     Dates: start: 20180707
  5. LANSOPRAZOLE. [Concomitant]
     Active Substance: LANSOPRAZOLE
  6. LIVACT [Concomitant]
     Active Substance: AMINO ACIDS
  7. LENVATINIB [Suspect]
     Active Substance: LENVATINIB
     Indication: HEPATOCELLULAR CARCINOMA
     Dosage: DAILY DOSE 12 MG
     Route: 048
     Dates: start: 20180626, end: 20180629
  8. LENVATINIB [Suspect]
     Active Substance: LENVATINIB
     Indication: HEPATOCELLULAR CARCINOMA
     Dosage: DAILY DOSE 8 MG
     Route: 048
     Dates: start: 20180630, end: 20180706
  9. MIYA?BM [Concomitant]
     Active Substance: CLOSTRIDIUM BUTYRICUM SPORES STRAIN M-55
  10. AIMIX [Concomitant]
     Active Substance: AMLODIPINE BESYLATE\IRBESARTAN
  11. FEBUXOSTAT. [Concomitant]
     Active Substance: FEBUXOSTAT
  12. URSODEOXYCHOLIC ACID [Concomitant]
     Active Substance: URSODIOL
  13. ARB [Concomitant]

REACTIONS (3)
  - Thrombotic microangiopathy [Not Recovered/Not Resolved]
  - Proteinuria [Not Recovered/Not Resolved]
  - Renal impairment [Not Recovered/Not Resolved]
